FAERS Safety Report 15436219 (Version 6)
Quarter: 2022Q4

REPORT INFORMATION
  Report Type: Report from Study
  Country: US (occurrence: US)
  Receive Date: 20180927
  Receipt Date: 20221212
  Transmission Date: 20230113
  Serious: Yes (Other)
  Sender: FDA-Public Use
  Company Number: US-PFIZER INC-2018388899

PATIENT
  Age: 85 Year
  Sex: Female
  Weight: 76 kg

DRUGS (10)
  1. DETROL LA [Suspect]
     Active Substance: TOLTERODINE TARTRATE
     Indication: Hypertonic bladder
     Dosage: 4 MG, 1X/DAY (AT NIGHT)
     Route: 048
  2. DETROL LA [Suspect]
     Active Substance: TOLTERODINE TARTRATE
     Indication: Bladder irritation
  3. DETROL LA [Suspect]
     Active Substance: TOLTERODINE TARTRATE
     Indication: Irritable bowel syndrome
  4. ASPIRIN [Concomitant]
     Active Substance: ASPIRIN
     Indication: Myocardial infarction
     Dosage: 81 MG, 1X/DAY (ONCE NIGHTLY.)
     Route: 065
  5. BYSTOLIC [Concomitant]
     Active Substance: NEBIVOLOL HYDROCHLORIDE
     Indication: Hypertension
     Dosage: UNK, 1X/DAY[5MG 1/2 PO (ORAL) ONCE A DAY]
     Route: 048
  6. CLARITIN [Concomitant]
     Active Substance: LORATADINE
     Indication: Hypersensitivity
     Dosage: 5 MG, 1X/DAY
     Route: 048
  7. DEXILANT [Concomitant]
     Active Substance: DEXLANSOPRAZOLE
     Indication: Gastrooesophageal reflux disease
     Dosage: 60 MG, 1X/DAY
     Route: 048
  8. LEXAPRO [Concomitant]
     Active Substance: ESCITALOPRAM OXALATE
     Indication: Major depression
     Dosage: 10 MG, 1X/DAY
     Route: 048
  9. LIPITOR [Concomitant]
     Active Substance: ATORVASTATIN CALCIUM
     Indication: Gastrooesophageal reflux disease
     Dosage: 20 MG, 1X/DAY
     Route: 048
  10. LIPITOR [Concomitant]
     Active Substance: ATORVASTATIN CALCIUM
     Indication: Lipids abnormal

REACTIONS (8)
  - Radius fracture [Recovering/Resolving]
  - Cataract [Recovered/Resolved]
  - Headache [Unknown]
  - Hypoacusis [Unknown]
  - Feeling abnormal [Unknown]
  - Body height decreased [Unknown]
  - Drug hypersensitivity [Unknown]
  - Pelvic floor hernia [Unknown]

NARRATIVE: CASE EVENT DATE: 20181122
